FAERS Safety Report 4381001-9 (Version None)
Quarter: 2004Q2

REPORT INFORMATION
  Report Type: 
  Country: None (occurrence: None)
  Receive Date: 20040614
  Receipt Date: 20040602
  Transmission Date: 20050107
  Serious: Yes (Hospitalization)
  Sender: FDA-Public Use
  Company Number: SEWYE461415DEC03

PATIENT
  Age: 29 Year
  Sex: Female

DRUGS (3)
  1. FOLLESTROL INJ [Suspect]
     Dosage: 1 TABLET 1X PER 1 DAY
     Route: 048
     Dates: start: 20030301, end: 20030401
  2. CERAZETTE (DESOGESTREL, , ) [Suspect]
     Indication: ORAL CONTRACEPTION
     Dosage: 1 TABLET 1X PER 1 DAY
     Route: 048
     Dates: start: 20030401, end: 20030727
  3. TRIONETTA (ETHINYLESTRADIOL/LEVONORGESTREL, , 0) [Suspect]
     Indication: ORAL CONTRACEPTION
     Dosage: 1 TABLET 1X PER 1 DAY
     Route: 048
     Dates: start: 20030728, end: 20030805

REACTIONS (15)
  - BLOOD CREATININE INCREASED [None]
  - BRAIN SCAN ABNORMAL [None]
  - CHILLS [None]
  - CHROMATURIA [None]
  - FATIGUE [None]
  - HAEMOGLOBIN DECREASED [None]
  - HAEMOLYSIS [None]
  - HEADACHE [None]
  - MALAISE [None]
  - MENORRHAGIA [None]
  - NAUSEA [None]
  - PYREXIA [None]
  - RED BLOOD CELL ABNORMALITY [None]
  - THROMBOTIC THROMBOCYTOPENIC PURPURA [None]
  - VOMITING [None]
